FAERS Safety Report 9680264 (Version 1)
Quarter: 2013Q4

REPORT INFORMATION
  Report Type: Spontaneous
  Country: US (occurrence: US)
  Receive Date: 20131111
  Receipt Date: 20131111
  Transmission Date: 20140711
  Serious: Yes (Hospitalization)
  Sender: FDA-Public Use
  Company Number: US-BIOGENIDEC-2013BI106824

PATIENT
  Sex: Female

DRUGS (1)
  1. AVONEX [Suspect]
     Indication: MULTIPLE SCLEROSIS
     Route: 030

REACTIONS (6)
  - Multiple sclerosis relapse [Unknown]
  - Thyroid disorder [Unknown]
  - Blood count abnormal [Unknown]
  - Optic neuritis [Unknown]
  - Phobia [Unknown]
  - Influenza like illness [Unknown]
